FAERS Safety Report 13171901 (Version 2)
Quarter: 2017Q1

REPORT INFORMATION
  Report Type: Report from Study
  Country: None (occurrence: GR)
  Receive Date: 20170131
  Receipt Date: 20170202
  Transmission Date: 20170428
  Serious: Yes (Hospitalization)
  Sender: FDA-Public Use
  Company Number: GR-ABBVIE-17P-066-1858020-00

PATIENT
  Sex: Female

DRUGS (5)
  1. DUODOPA [Suspect]
     Active Substance: CARBIDOPA\LEVODOPA
     Dosage: MORNING DOSE:6ML; CONTINUOUS RATE:2.4ML/H; EXTRA DOSE:1.4ML
     Route: 050
     Dates: start: 20170124
  2. DUODOPA [Suspect]
     Active Substance: CARBIDOPA\LEVODOPA
     Indication: PARKINSON^S DISEASE
     Dosage: MORNING DOSE:6ML; CONTINUOUS RATE:2.8ML/H; EXTRA DOSE:1.4ML
     Route: 050
     Dates: start: 201311, end: 20170124
  3. DUODOPA [Suspect]
     Active Substance: CARBIDOPA\LEVODOPA
     Dosage: MORNING DOSE:4ML; CONTINUOUS RATE: 2.5ML/H; EXTRA DOSE:1.4ML
     Route: 050
     Dates: start: 20170125
  4. DUODOPA [Suspect]
     Active Substance: CARBIDOPA\LEVODOPA
     Dosage: MORNING DOSE:4.5ML; CONTINUOUS RATE: 2.8ML/H; EXTRA DOSE:1.4ML
     Route: 050
     Dates: start: 20170127
  5. DUODOPA [Suspect]
     Active Substance: CARBIDOPA\LEVODOPA
     Dosage: MORNING DOSE:4.5ML; CONTINUOUS RATE: 2.7ML/H; EXTRA DOSE:1.4ML
     Route: 050
     Dates: start: 20170126, end: 20170126

REACTIONS (2)
  - Hyperkinesia [Recovered/Resolved]
  - Incorrect dose administered [Recovered/Resolved]
